FAERS Safety Report 9934835 (Version 9)
Quarter: 2015Q1

REPORT INFORMATION
  Report Type: Report from Study
  Country: ES (occurrence: ES)
  Receive Date: 20140228
  Receipt Date: 20150116
  Transmission Date: 20150721
  Serious: Yes (Life-Threatening, Hospitalization, Other)
  Sender: FDA-Public Use
  Company Number: ES-ABBVIE-14P-144-1201932-00

PATIENT
  Sex: Female

DRUGS (14)
  1. IMUREL [Concomitant]
     Active Substance: AZATHIOPRINE SODIUM
     Indication: COLITIS ULCERATIVE
     Route: 048
     Dates: start: 20090128, end: 20140212
  2. KILOR [Concomitant]
     Indication: ANAEMIA
     Route: 048
     Dates: start: 20140203
  3. SALOFALK [Concomitant]
     Active Substance: MESALAMINE
     Indication: COLITIS ULCERATIVE
     Dosage: 4G/60 ML GRAMS
     Route: 054
     Dates: start: 20130628
  4. LORMETAZEPAM [Concomitant]
     Active Substance: LORMETAZEPAM
     Indication: ANXIETY
     Route: 048
     Dates: start: 20100325
  5. CLAVERSAL [Concomitant]
     Active Substance: MESALAMINE
     Indication: COLITIS ULCERATIVE
     Route: 048
     Dates: start: 20110531, end: 20140401
  6. CELEBREX [Concomitant]
     Active Substance: CELECOXIB
     Indication: ARTHRALGIA
     Route: 048
     Dates: start: 20120315
  7. HUMIRA [Suspect]
     Active Substance: ADALIMUMAB
     Indication: COLITIS ULCERATIVE
     Route: 058
     Dates: start: 20130930, end: 20140203
  8. OPTOVITE B12 [Concomitant]
     Indication: PERNICIOUS ANAEMIA
     Dosage: 1000 MCG/2ML MICROGRAMS- 1 VIAL
     Route: 030
     Dates: start: 20120507
  9. IDEOS [Concomitant]
     Active Substance: CALCIUM CARBONATE\CHOLECALCIFEROL
     Indication: UNEVALUABLE EVENT
     Dosage: 1250 MG/400 UI MILLIGRAM
     Route: 048
     Dates: start: 20130628
  10. DEZACOR [Concomitant]
     Active Substance: DEFLAZACORT
     Indication: COLITIS ULCERATIVE
     Route: 048
     Dates: start: 20130603
  11. PROZAC [Concomitant]
     Active Substance: FLUOXETINE HYDROCHLORIDE
     Indication: DEPRESSION
     Route: 048
     Dates: start: 20100225
  12. OPIREN [Concomitant]
     Active Substance: LANSOPRAZOLE
     Indication: PROPHYLAXIS AGAINST GASTROINTESTINAL ULCER
     Route: 048
     Dates: start: 20110531
  13. TRANKIMAZIN [Concomitant]
     Active Substance: ALPRAZOLAM
     Indication: ANXIETY
     Route: 048
     Dates: start: 20100225
  14. TARDYFERON [Concomitant]
     Active Substance: FERROUS SULFATE\FOLIC ACID
     Indication: ANAEMIA
     Route: 048
     Dates: start: 20131127, end: 20140203

REACTIONS (2)
  - Rectal abscess [Recovered/Resolved]
  - Pancytopenia [Recovered/Resolved]

NARRATIVE: CASE EVENT DATE: 20140211
